FAERS Safety Report 22199498 (Version 1)
Quarter: 2023Q2

REPORT INFORMATION
  Report Type: Spontaneous
  Country: CN (occurrence: CN)
  Receive Date: 20230412
  Receipt Date: 20230412
  Transmission Date: 20230721
  Serious: Yes (Other)
  Sender: FDA-Public Use
  Company Number: None

PATIENT
  Age: 50 Year
  Sex: Female
  Weight: 65 kg

DRUGS (6)
  1. CYCLOPHOSPHAMIDE [Suspect]
     Active Substance: CYCLOPHOSPHAMIDE
     Indication: Chemotherapy
     Dosage: 800 MG, QD DILUTED WITH 0.9 % SODIUM CHLORIDE 100 ML, AT 08: 40 HOURS
     Route: 041
     Dates: start: 20230318, end: 20230318
  2. CYCLOPHOSPHAMIDE [Suspect]
     Active Substance: CYCLOPHOSPHAMIDE
     Indication: Breast cancer female
  3. EPIRUBICIN HYDROCHLORIDE [Suspect]
     Active Substance: EPIRUBICIN HYDROCHLORIDE
     Indication: Chemotherapy
     Dosage: 140 MG, QD DILUTED WITH 0.9% SODIUM CHLORIDE 100 ML, AT 08: 40 HOURS
     Route: 041
     Dates: start: 20230318, end: 20230318
  4. EPIRUBICIN HYDROCHLORIDE [Suspect]
     Active Substance: EPIRUBICIN HYDROCHLORIDE
     Indication: Breast cancer female
  5. SODIUM CHLORIDE [Suspect]
     Active Substance: SODIUM CHLORIDE
     Indication: Medication dilution
     Dosage: 100 ML, QD USED TO DILUTE 800 MG CYCLOPHOSPHAMIDE, AT 08: 40 HOURS
     Route: 041
     Dates: start: 20230318, end: 20230318
  6. SODIUM CHLORIDE [Suspect]
     Active Substance: SODIUM CHLORIDE
     Dosage: 100 ML, QD  USED TO DILUTE 140 MG EPIRUBICIN, AT 08: 40 HOURS
     Route: 041
     Dates: start: 20230318, end: 20230318

REACTIONS (1)
  - White blood cell count decreased [Recovering/Resolving]

NARRATIVE: CASE EVENT DATE: 20230321
